FAERS Safety Report 5797928-7 (Version None)
Quarter: 2008Q3

REPORT INFORMATION
  Report Type: 
  Country: None (occurrence: None)
  Receive Date: 20080702
  Receipt Date: 20080619
  Transmission Date: 20090109
  Serious: Yes (Hospitalization, Other)
  Sender: FDA-Public Use
  Company Number: CH-ELI_LILLY_AND_COMPANY-CH200806004531

PATIENT
  Age: 64 Year
  Sex: Female

DRUGS (2)
  1. GEMZAR [Suspect]
     Indication: OVARIAN CANCER
     Dosage: UNK, UNKNOWN
     Route: 065
     Dates: start: 20071212, end: 20080403
  2. CARBOPLATIN [Concomitant]
     Indication: OVARIAN CANCER
     Dosage: UNK, UNKNOWN
     Route: 065
     Dates: start: 20071201

REACTIONS (2)
  - CEREBRAL HAEMORRHAGE [None]
  - SKIN NECROSIS [None]
